FAERS Safety Report 16787738 (Version 3)
Quarter: 2020Q2

REPORT INFORMATION
  Report Type: Report from Study
  Country: UG (occurrence: UG)
  Receive Date: 20190909
  Receipt Date: 20200520
  Transmission Date: 20200713
  Serious: Yes (Congenital Anomaly, Other)
  Sender: FDA-Public Use
  Company Number: UG-MYLANLABS-2019M1083420

PATIENT
  Sex: Male

DRUGS (4)
  1. TIVICAY [Suspect]
     Active Substance: DOLUTEGRAVIR SODIUM
     Indication: HIV INFECTION
     Dosage: 50 MILLIGRAM, QD
     Route: 064
     Dates: start: 20180517
  2. LAMIVUDINE/TENOFOVIR DISOPROXIL FUMARATE [Suspect]
     Active Substance: LAMIVUDINE\TENOFOVIR DISOPROXIL FUMARATE
     Indication: PRODUCT USED FOR UNKNOWN INDICATION
     Dosage: 1 DOSAGE FORM, QD
     Route: 064
     Dates: start: 20180517
  3. DOLUTEGRAVIR [Suspect]
     Active Substance: DOLUTEGRAVIR
     Indication: HIV INFECTION
     Dosage: UNK UNK, QD
     Route: 064
  4. SULPHAMETHOXAZOLE/TRIMETHOPRIM [Suspect]
     Active Substance: SULFAMETHOXAZOLE\TRIMETHOPRIM
     Indication: PRODUCT USED FOR UNKNOWN INDICATION
     Dosage: UNK
     Route: 064

REACTIONS (2)
  - Foetal exposure during pregnancy [Recovered/Resolved]
  - Congenital umbilical hernia [Unknown]

NARRATIVE: CASE EVENT DATE: 2018
